FAERS Safety Report 7433920-4 (Version None)
Quarter: 2011Q2

REPORT INFORMATION
  Report Type: 
  Country: None (occurrence: None)
  Receive Date: 20110420
  Receipt Date: 20110420
  Transmission Date: 20111010
  Serious: Yes (Hospitalization)
  Sender: FDA-Public Use
  Company Number: None

PATIENT
  Sex: Female
  Weight: 62.5 kg

DRUGS (7)
  1. IRINOTECAN HYDROCHLORIDE [Suspect]
     Indication: COLON CANCER METASTATIC
     Dosage: 120MG/M2 IV EVERY 2 WKS.
     Route: 042
     Dates: start: 20110413
  2. METOPROLOL SUCCINATE [Concomitant]
  3. BKM 120 [Suspect]
     Indication: COLON CANCER METASTATIC
     Dosage: BKM 120 50MG PO DAILY
     Route: 048
     Dates: start: 20110414
  4. BENADRYL [Concomitant]
  5. SENOKOT [Concomitant]
  6. PEPCID [Concomitant]
  7. MYLANTA [Concomitant]

REACTIONS (1)
  - ACUTE MYOCARDIAL INFARCTION [None]
